FAERS Safety Report 8691840 (Version 3)
Quarter: 2013Q1

REPORT INFORMATION
  Report Type: Spontaneous
  Country: FR (occurrence: None)
  Receive Date: 20120712
  Receipt Date: 20121231
  Transmission Date: 20140127
  Serious: Yes (Other)
  Sender: FDA-Public Use
  Company Number: 2012032808

PATIENT
  Age: 73 Year
  Sex: Male

DRUGS (3)
  1. PRIVIGEN [Suspect]
     Indication: CHRONIC INFLAMMATORY DEMYELINATING POLYRADICULONEUROPATHY
     Dosage: 30 G QD, EVERY 4 WEEKS; 100MG/ML , INTRAVENOUS (NOT OTHERWISE SPECIFIED)
     Dates: start: 20120309, end: 20120309
  2. SOLU-MEDROL (METHYLPREDNISOLONE SODIUM SUCCINATE) [Concomitant]
  3. GAMMAGARD (IMMUNOGLOBULIN HUMAN NORMAL) [Concomitant]

REACTIONS (7)
  - Skin exfoliation [None]
  - Dermatitis allergic [None]
  - Off label use [None]
  - Dry skin [None]
  - Pruritus [None]
  - Eczema [None]
  - Dyshidrotic eczema [None]
